FAERS Safety Report 7807254-X (Version None)
Quarter: 2011Q4

REPORT INFORMATION
  Report Type: 
  Country: None (occurrence: None)
  Receive Date: 20111011
  Receipt Date: 20111006
  Transmission Date: 20120403
  Serious: Yes (Hospitalization, Disabling, Other)
  Sender: FDA-Public Use
  Company Number: US-PFIZER INC-2011054347

PATIENT
  Sex: Female

DRUGS (4)
  1. ULTRAM [Concomitant]
     Indication: BACK PAIN
     Dosage: UNK
     Dates: start: 20070101
  2. CYCLOBENZAPRINE [Concomitant]
     Indication: BACK PAIN
     Dosage: UNK
     Dates: start: 20070101
  3. CHANTIX [Suspect]
     Indication: SMOKING CESSATION THERAPY
     Dosage: UNK
     Dates: start: 20090201, end: 20090401
  4. CYCLOBENZAPRINE [Concomitant]
     Indication: MIGRAINE

REACTIONS (4)
  - DEPRESSION [None]
  - INJURY [None]
  - SUICIDE ATTEMPT [None]
  - ANXIETY [None]
